FAERS Safety Report 8769736 (Version 3)
Quarter: 2013Q2

REPORT INFORMATION
  Report Type: Report from Study
  Country: JP (occurrence: JP)
  Receive Date: 20120905
  Receipt Date: 20130410
  Transmission Date: 20140414
  Serious: Yes (Hospitalization)
  Sender: FDA-Public Use
  Company Number: JP-009507513-1209JPN000367

PATIENT
  Age: 71 Year
  Sex: Female
  Weight: 51 kg

DRUGS (13)
  1. PEGINTRON [Suspect]
     Indication: CHRONIC HEPATITIS C
     Dosage: 1.5 MICROGRAM PER KILOGRAM, QW
     Route: 058
     Dates: start: 20120626
  2. PEGINTRON [Suspect]
     Dosage: 70 MICROGRAMPER BODY, QW
     Route: 058
     Dates: end: 20120823
  3. PEGINTRON [Suspect]
     Dosage: 50 MICROGRAM PER BODY, QW
     Route: 058
     Dates: start: 20120829, end: 20120926
  4. PEGINTRON [Suspect]
     Dosage: 60 MICROGRAM PER BODY, QW
     Route: 058
     Dates: start: 20101003, end: 20121121
  5. PEGINTRON [Suspect]
     Dosage: 60 MICROGRAM PER BODY, QW
     Route: 058
     Dates: start: 20121203, end: 20121212
  6. REBETOL [Suspect]
     Indication: CHRONIC HEPATITIS C
     Dosage: 600 MG, QD
     Route: 048
     Dates: start: 20120626, end: 20120717
  7. REBETOL [Suspect]
     Dosage: 200 MG, QD
     Route: 048
     Dates: start: 20120718
  8. REBETOL [Suspect]
     Dosage: 200MG/DAY ON ALTERNATE DAY
     Route: 048
     Dates: end: 20120801
  9. REBETOL [Suspect]
     Dosage: 200MG,QD
     Route: 048
     Dates: start: 20120809, end: 20120918
  10. REBETOL [Suspect]
     Dosage: 400 MG, QD
     Route: 048
     Dates: start: 20120919, end: 20121211
  11. TELAVIC [Suspect]
     Indication: CHRONIC HEPATITIS C
     Dosage: 1500 MG, QD
     Route: 048
     Dates: start: 20120626, end: 20120906
  12. FAMOTIDINE [Concomitant]
     Indication: GASTRITIS
     Dosage: 40 MG, QD
     Route: 048
     Dates: end: 20120820
  13. FAMOTIDINE [Concomitant]
     Dosage: 40 MG, QD
     Route: 048
     Dates: start: 20120820

REACTIONS (1)
  - Decreased appetite [Recovering/Resolving]
